FAERS Safety Report 8294111-0 (Version None)
Quarter: 2012Q2

REPORT INFORMATION
  Report Type: 
  Country: None (occurrence: None)
  Receive Date: 20120418
  Receipt Date: 20120403
  Transmission Date: 20120825
  Serious: Yes (Hospitalization, Other)
  Sender: FDA-Public Use
  Company Number: PHHY2012US031557

PATIENT
  Sex: Female
  Weight: 84.354 kg

DRUGS (12)
  1. CLONIDINE [Concomitant]
     Indication: HYPERTENSION
     Dosage: 0.2 MG, BID
     Route: 048
  2. AGRYLIN [Concomitant]
     Dosage: 1 MG, QD
     Route: 048
     Dates: start: 20110816
  3. DESFERAL [Suspect]
     Dosage: 14 G, Q 2-3 WEEKS
     Route: 042
     Dates: start: 20091105
  4. SULAR [Concomitant]
     Dosage: 17 MG, QD
     Route: 048
     Dates: start: 20110816
  5. SULAR [Concomitant]
     Indication: HYPERTENSION
     Dosage: 17 MG, QD
     Route: 048
  6. AGRYLIN [Concomitant]
     Indication: ESSENTIAL THROMBOCYTHAEMIA
     Dosage: 1 MG, QD
     Route: 048
     Dates: start: 20050601
  7. TEKTURNA [Concomitant]
     Indication: HYPERTENSION
     Dosage: 300 MG, QD
  8. CLONIDINE [Concomitant]
     Dosage: 0.2 MG, BID
     Route: 048
     Dates: start: 20110816
  9. HYDROXYUREA [Concomitant]
     Indication: ESSENTIAL THROMBOCYTHAEMIA
     Dosage: 500 MG, QD
     Route: 048
     Dates: start: 20050601
  10. EXJADE [Suspect]
     Indication: MYELODYSPLASTIC SYNDROME
  11. TEKTURNA [Concomitant]
     Dosage: 300 MG, QD
     Route: 048
     Dates: start: 20110816
  12. HYDROXYUREA [Concomitant]
     Dosage: 500 MG, QD
     Route: 048
     Dates: start: 20110815

REACTIONS (12)
  - ATRIAL FIBRILLATION [None]
  - PULMONARY OEDEMA [None]
  - BLOOD CREATININE INCREASED [None]
  - POLYURIA [None]
  - RENAL FAILURE ACUTE [None]
  - DYSPNOEA [None]
  - PLEURAL EFFUSION [None]
  - HYPOXIA [None]
  - CHEST DISCOMFORT [None]
  - PYREXIA [None]
  - PULMONARY CONGESTION [None]
  - CARDIAC FAILURE CONGESTIVE [None]
